FAERS Safety Report 16576619 (Version 1)
Quarter: 2019Q3

REPORT INFORMATION
  Report Type: Spontaneous
  Country: AU (occurrence: AU)
  Receive Date: 20190716
  Receipt Date: 20190716
  Transmission Date: 20191004
  Serious: No
  Sender: FDA-Public Use
  Company Number: AU-BEH-2019104253

PATIENT
  Age: 51 Year

DRUGS (1)
  1. PRIVIGEN [Suspect]
     Active Substance: HUMAN IMMUNOGLOBULIN G
     Indication: CHRONIC INFLAMMATORY DEMYELINATING POLYRADICULONEUROPATHY
     Dosage: 30 GRAM, QMT (4 WEEKLY)
     Route: 065

REACTIONS (2)
  - Hypertension [Unknown]
  - Chills [Unknown]

NARRATIVE: CASE EVENT DATE: 20190622
